FAERS Safety Report 4732998-6 (Version None)
Quarter: 2005Q3

REPORT INFORMATION
  Report Type: 
  Country: None (occurrence: None)
  Receive Date: 20050725
  Receipt Date: 20040521
  Transmission Date: 20060218
  Serious: Yes (Life-Threatening, Hospitalization, Other)
  Sender: FDA-Public Use
  Company Number: WAES 0405USA01712

PATIENT
  Age: 97 Year
  Sex: Female
  Weight: 51.2565 kg

DRUGS (9)
  1. VIOXX [Suspect]
     Indication: OSTEOARTHRITIS
     Dosage: 25 MG/DAILY/PO
     Route: 048
     Dates: start: 20020924, end: 20040325
  2. VIOXX [Suspect]
     Indication: OSTEOARTHRITIS
     Dosage: 25 MG/DAILY/PO
     Route: 048
     Dates: start: 20040426, end: 20040524
  3. BENICAR HCT [Concomitant]
  4. LEVOXYL [Concomitant]
  5. MIRAPEX [Concomitant]
  6. PRINZIDE [Concomitant]
  7. VICODIN [Concomitant]
  8. ZOLOFT [Concomitant]
  9. ASPIRIN [Concomitant]

REACTIONS (1)
  - GASTROINTESTINAL HAEMORRHAGE [None]
